FAERS Safety Report 9058496 (Version 1)
Quarter: 2013Q1

REPORT INFORMATION
  Report Type: Spontaneous
  Country: US (occurrence: None)
  Receive Date: 20130118
  Receipt Date: 20130118
  Transmission Date: 20140127
  Serious: Yes (Death)
  Sender: FDA-Public Use
  Company Number: AUR-APL-2013-00257

PATIENT
  Age: 38 Year
  Sex: Female

DRUGS (3)
  1. DIVALPROEX [Suspect]
     Indication: PRODUCT USED FOR UNKNOWN INDICATION
  2. OXYCODONE (OXYCODONE) [Suspect]
     Route: 048
  3. METHAMPHETAMINE [Suspect]

REACTIONS (2)
  - Toxicity to various agents [None]
  - Drug abuse [None]
